FAERS Safety Report 5609152-9 (Version None)
Quarter: 2008Q1

REPORT INFORMATION
  Report Type: 
  Country: None (occurrence: None)
  Receive Date: 20080130
  Receipt Date: 20080130
  Transmission Date: 20080703
  Serious: Yes (Hospitalization, Other)
  Sender: FDA-Public Use
  Company Number: None

PATIENT
  Age: 9 Year
  Sex: Male
  Weight: 40.8237 kg

DRUGS (3)
  1. TYLENOL MULTI-COLD (CHILDREN'S) [Suspect]
     Indication: COUGH
     Dosage: 2 TSP.  ONCE
     Dates: start: 20071003
  2. TYLENOL MULTI-COLD (CHILDREN'S) [Suspect]
     Indication: HEADACHE
     Dosage: 2 TSP.  ONCE
     Dates: start: 20071003
  3. TYLENOL MULTI-COLD (CHILDREN'S) [Suspect]
     Indication: NASOPHARYNGITIS
     Dosage: 2 TSP.  ONCE
     Dates: start: 20071003

REACTIONS (8)
  - AMNESIA [None]
  - DISTURBANCE IN ATTENTION [None]
  - DYSARTHRIA [None]
  - DYSKINESIA [None]
  - HALLUCINATION [None]
  - LOSS OF CONSCIOUSNESS [None]
  - SPEECH DISORDER [None]
  - TIC [None]
